FAERS Safety Report 23587263 (Version 1)
Quarter: 2024Q1

REPORT INFORMATION
  Report Type: Spontaneous
  Country: US (occurrence: US)
  Receive Date: 20240301
  Receipt Date: 20240301
  Transmission Date: 20240410
  Serious: No
  Sender: FDA-Public Use
  Company Number: US-Albireo AB-2023ALB000330

PATIENT
  Age: 12 Year
  Sex: Male

DRUGS (1)
  1. BYLVAY [Suspect]
     Active Substance: ODEVIXIBAT
     Indication: Product used for unknown indication
     Dosage: TAKE TWO 400 MCG ORAL CAPSULES BY MOUTH ONCE DAILY WITH A MEAL.
     Route: 048
     Dates: start: 20230123

REACTIONS (1)
  - Diarrhoea [Unknown]
